FAERS Safety Report 25136075 (Version 4)
Quarter: 2025Q4

REPORT INFORMATION
  Report Type: Spontaneous
  Country: JP (occurrence: JP)
  Receive Date: 20250328
  Receipt Date: 20251203
  Transmission Date: 20260118
  Serious: Yes (Death, Life-Threatening, Hospitalization, Other)
  Sender: ALEXION PHARMACEUTICALS
  Company Number: JP-ASTRAZENECA-250028957_010520_P_1

PATIENT
  Age: 62 Year
  Sex: Female
  Weight: 51.2 kg

DRUGS (11)
  1. TRUQAP [Suspect]
     Active Substance: CAPIVASERTIB
     Indication: Breast cancer female
     Dosage: 320 MILLIGRAM, BID
     Dates: start: 20250318, end: 20250321
  2. FASLODEX [Suspect]
     Active Substance: FULVESTRANT
     Indication: Breast cancer female
     Dosage: UNK
     Dates: start: 20171113, end: 20200122
  3. FASLODEX [Suspect]
     Active Substance: FULVESTRANT
  4. LETROZOLE [Concomitant]
     Active Substance: LETROZOLE
     Dosage: UNK
     Route: 065
  5. ABEMACICLIB [Concomitant]
     Active Substance: ABEMACICLIB
     Indication: Breast cancer female
     Dosage: UNK
     Route: 065
  6. DENOSUMAB [Concomitant]
     Active Substance: DENOSUMAB
     Indication: Breast cancer female
     Dosage: UNK
     Route: 065
  7. BEVACIZUMAB [Concomitant]
     Active Substance: BEVACIZUMAB
     Indication: Breast cancer female
     Dosage: UNK
     Route: 065
  8. PACLITAXEL [Concomitant]
     Active Substance: PACLITAXEL
     Indication: Breast cancer female
     Dosage: UNK
     Route: 065
  9. TRASTUZUMAB DERUXTECAN [Concomitant]
     Active Substance: TRASTUZUMAB DERUXTECAN
     Indication: Breast cancer female
     Dosage: UNK
     Route: 065
  10. DOXORUBICIN HYDROCHLORIDE [Concomitant]
     Active Substance: DOXORUBICIN HYDROCHLORIDE
     Indication: Breast cancer female
     Dosage: UNK
     Route: 065
  11. Cyclophosphamide hikma [Concomitant]
     Indication: Breast cancer female
     Dosage: UNK
     Route: 065

REACTIONS (6)
  - Breast cancer female [Fatal]
  - Ketoacidosis [Recovered/Resolved]
  - Renal impairment [Unknown]
  - Disseminated intravascular coagulation [Unknown]
  - Metastases to bone [Unknown]
  - White blood cell count increased [Unknown]

NARRATIVE: CASE EVENT DATE: 20250321
